FAERS Safety Report 16940007 (Version 3)
Quarter: 2019Q4

REPORT INFORMATION
  Report Type: Report from Study
  Country: JP (occurrence: JP)
  Receive Date: 20191021
  Receipt Date: 20191202
  Transmission Date: 20200122
  Serious: Yes (Hospitalization)
  Sender: FDA-Public Use
  Company Number: PHHO2019JP008911

PATIENT
  Age: 66 Year
  Sex: Male
  Weight: 69.2 kg

DRUGS (21)
  1. FEBUXOSTAT. [Concomitant]
     Active Substance: FEBUXOSTAT
     Indication: HYPERURICAEMIA
     Dosage: UNK
     Route: 065
     Dates: start: 20140919
  2. LOXOPROFEN SODIUM HYDRATE [Concomitant]
     Active Substance: LOXOPROFEN SODIUM DIHYDRATE
     Indication: SPINAL COMPRESSION FRACTURE
     Dosage: UNK
     Route: 065
     Dates: start: 20190527
  3. SODIUM RISEDRONATE HYDRATE [Concomitant]
     Active Substance: RISEDRONATE SODIUM HEMI-PENTAHYDRATE
     Indication: OSTEOPOROSIS PROPHYLAXIS
     Dosage: UNK
     Route: 065
     Dates: start: 20190425
  4. INSULIN ASPART [Concomitant]
     Active Substance: INSULIN ASPART
     Indication: DIABETES MELLITUS
     Dosage: UNK
     Route: 065
     Dates: start: 20190724
  5. AZOSEMIDE [Concomitant]
     Active Substance: AZOSEMIDE
     Dosage: UNK
     Route: 065
     Dates: start: 20190810
  6. SULFAMETOXAZOL/TRIMETOPRIM [Concomitant]
     Active Substance: SULFAMETHOXAZOLE\TRIMETHOPRIM
     Indication: PNEUMONIA
     Dosage: UNK
     Route: 065
     Dates: start: 20190328
  7. RABEPRAZOLE SODIUM. [Concomitant]
     Active Substance: RABEPRAZOLE SODIUM
     Indication: PROPHYLAXIS
     Dosage: UNK
     Route: 065
     Dates: start: 20160113
  8. APIXABAN [Concomitant]
     Active Substance: APIXABAN
     Indication: ATRIAL FIBRILLATION
     Dosage: UNK
     Route: 065
     Dates: start: 20190422
  9. INSULIN GLARGINE [Concomitant]
     Active Substance: INSULIN GLARGINE
     Indication: DIABETES MELLITUS
     Dosage: UNK
     Route: 065
     Dates: start: 20190724, end: 20190902
  10. SENNOSIDE A+B CALCIUM [Concomitant]
     Active Substance: SENNOSIDES A AND B
     Indication: GENERAL PHYSICAL CONDITION
     Dosage: UNK
     Route: 065
     Dates: start: 20190514
  11. RAMELTEON [Concomitant]
     Active Substance: RAMELTEON
     Indication: INSOMNIA
     Dosage: UNK
     Route: 065
     Dates: start: 20190125
  12. FUROSEMIDE. [Concomitant]
     Active Substance: FUROSEMIDE
     Indication: CARDIAC FAILURE
     Dosage: UNK
     Route: 065
     Dates: start: 20190810, end: 20190810
  13. PREDNISOLONE. [Concomitant]
     Active Substance: PREDNISOLONE
     Indication: AUTOIMMUNE HAEMOLYTIC ANAEMIA
     Dosage: UNK
     Route: 065
     Dates: start: 20190725
  14. ASPIRIN. [Concomitant]
     Active Substance: ASPIRIN
     Indication: CAROTID ARTERY STENOSIS
     Dosage: UNK
     Route: 065
     Dates: start: 20170921
  15. AMBROXOL HYDROCHLORIDE [Concomitant]
     Active Substance: AMBROXOL HYDROCHLORIDE
     Indication: CHRONIC OBSTRUCTIVE PULMONARY DISEASE
     Dosage: UNK
     Route: 065
     Dates: start: 20170728
  16. ELOBIXIBAT [Concomitant]
     Active Substance: ELOBIXIBAT
     Indication: GENERAL PHYSICAL CONDITION
     Dosage: UNK
     Route: 065
     Dates: start: 20190528
  17. AZOSEMIDE [Concomitant]
     Active Substance: AZOSEMIDE
     Indication: CARDIAC FAILURE
     Dosage: UNK
     Route: 065
     Dates: start: 20190727, end: 20190809
  18. ATORVASTATIN CALCIUM. [Concomitant]
     Active Substance: ATORVASTATIN CALCIUM
     Indication: DYSLIPIDAEMIA
     Dosage: UNK
     Route: 065
     Dates: start: 20190626
  19. LCZ696 [Suspect]
     Active Substance: SACUBITRIL\VALSARTAN
     Indication: CARDIAC FAILURE
     Dosage: 50 MG, BID
     Route: 048
     Dates: start: 20190513
  20. ATORVASTATIN CALCIUM. [Concomitant]
     Active Substance: ATORVASTATIN CALCIUM
     Indication: CAROTID ARTERY STENOSIS
  21. TRAMADOL HYDROCHLORIDE AND ACETAMINOPHEN [Concomitant]
     Active Substance: ACETAMINOPHEN\TRAMADOL HYDROCHLORIDE
     Indication: SPINAL COMPRESSION FRACTURE
     Dosage: UNK
     Route: 065
     Dates: start: 20190514

REACTIONS (1)
  - Spinal compression fracture [Not Recovered/Not Resolved]

NARRATIVE: CASE EVENT DATE: 20190824
